FAERS Safety Report 7596937-5 (Version None)
Quarter: 2011Q3

REPORT INFORMATION
  Report Type: 
  Country: None (occurrence: None)
  Receive Date: 20110708
  Receipt Date: 20110628
  Transmission Date: 20111222
  Serious: Yes (Other)
  Sender: FDA-Public Use
  Company Number: FR-AMGEN-FRASP2011023503

PATIENT
  Age: 38 Year
  Sex: Female

DRUGS (2)
  1. AMOXICILLIN [Suspect]
     Indication: TONSILLITIS
     Dosage: 1000 MG, 2X/DAY
     Dates: start: 20110325, end: 20110329
  2. ENBREL [Suspect]
     Indication: PSORIATIC ARTHROPATHY
     Dosage: 50 MG, WEEKLY
     Route: 058
     Dates: start: 20080101

REACTIONS (7)
  - TOXIC SKIN ERUPTION [None]
  - ERYTHEMA NODOSUM [None]
  - TONSILLITIS [None]
  - NODULE [None]
  - SUBCUTANEOUS NODULE [None]
  - RASH PUSTULAR [None]
  - SOFT TISSUE INFLAMMATION [None]
